FAERS Safety Report 19200011 (Version 3)
Quarter: 2021Q3

REPORT INFORMATION
  Report Type: Spontaneous
  Country: JP (occurrence: JP)
  Receive Date: 20210430
  Receipt Date: 20210928
  Transmission Date: 20211014
  Serious: Yes (Other)
  Sender: FDA-Public Use
  Company Number: JP-GLAXOSMITHKLINE-JP2020JPN241607

PATIENT
  Age: 77 Year
  Sex: Male

DRUGS (7)
  1. NAUZELIN TABLETS [Concomitant]
     Indication: CHRONIC GASTRITIS
     Dosage: 30 MG, 1D
     Route: 048
     Dates: start: 201902
  2. TRELEGY ELLIPTA [Suspect]
     Active Substance: FLUTICASONE FUROATE\UMECLIDINIUM BROMIDE\VILANTEROL TRIFENATATE
     Indication: CHRONIC OBSTRUCTIVE PULMONARY DISEASE
     Dosage: 100 ?G, QD
     Route: 055
     Dates: start: 20200301
  3. CLEANAL TABLETS [Concomitant]
     Active Substance: FUDOSTEINE
     Indication: BRONCHITIS CHRONIC
     Dosage: 1200 MG, 1D
     Route: 048
     Dates: start: 201403
  4. ZALUTIA TABLETS [Concomitant]
     Indication: BENIGN PROSTATIC HYPERPLASIA
     Dosage: 5 MG, 1D
     Route: 048
     Dates: start: 201903
  5. SULTANOL [Suspect]
     Active Substance: ALBUTEROL SULFATE
     Indication: ASTHMA
     Dosage: UNK, PRN
     Route: 055
     Dates: start: 201706
  6. THEODUR TABLETS [Concomitant]
     Indication: ASTHMA
     Dosage: 300 MG, 1D
     Route: 048
     Dates: start: 201403
  7. NEXIUM [Concomitant]
     Active Substance: ESOMEPRAZOLE MAGNESIUM
     Indication: GASTROOESOPHAGEAL REFLUX DISEASE
     Dosage: 20 MG, 1D
     Route: 048
     Dates: start: 201710

REACTIONS (5)
  - Pyrexia [Recovered/Resolved]
  - Bronchitis [Recovered/Resolved]
  - Pneumonia [Recovered/Resolved]
  - Productive cough [Recovered/Resolved]
  - Upper respiratory tract infection [Recovering/Resolving]

NARRATIVE: CASE EVENT DATE: 20200613
